FAERS Safety Report 11075227 (Version 2)
Quarter: 2015Q2

REPORT INFORMATION
  Report Type: Spontaneous
  Country: ZA (occurrence: ZA)
  Receive Date: 20150429
  Receipt Date: 20150511
  Transmission Date: 20150821
  Serious: Yes (Hospitalization)
  Sender: FDA-Public Use
  Company Number: ZA-PFIZER INC-2015143173

PATIENT
  Age: 74 Year
  Sex: Female

DRUGS (12)
  1. OSTEOBON [Concomitant]
     Indication: OSTEOPOROSIS
     Dosage: 70 MG, WEEKLY
     Route: 048
     Dates: start: 2005, end: 20141108
  2. PURICOS [Concomitant]
     Active Substance: ALLOPURINOL
     Indication: GOUT
     Dosage: 300 MG, DAILY
     Route: 048
     Dates: start: 2014
  3. LYRICA [Suspect]
     Active Substance: PREGABALIN
     Indication: NEURALGIA
     Dosage: 25 MG, UNK
     Route: 048
     Dates: start: 2014
  4. RIVOTRIL [Concomitant]
     Active Substance: CLONAZEPAM
     Indication: PANIC ATTACK
     Dosage: 0.5 MG, 2X/DAY (12HOURLY)
     Route: 048
     Dates: start: 2001
  5. MOBIC [Concomitant]
     Active Substance: MELOXICAM
     Indication: RHEUMATOID ARTHRITIS
     Dosage: 15 MG, DAILY
     Route: 048
     Dates: start: 2010
  6. PLENISH-K [Concomitant]
     Indication: HYPOKALAEMIA
     Dosage: 600 MG, DAILY
     Route: 048
     Dates: start: 2008
  7. LOKIT /00661201/ [Concomitant]
     Indication: GASTRIC ULCER
     Dosage: 20 MG, DAILY
     Route: 048
     Dates: start: 2009
  8. TREPILINE /00002201/ [Concomitant]
     Indication: DEPRESSION
     Dosage: 25 MG, AS NEEDED
     Route: 048
     Dates: start: 2008
  9. ASPIRIN CARDIO [Concomitant]
     Active Substance: ASPIRIN
     Indication: ANTICOAGULANT THERAPY
     Dosage: 100 MG, DAILY
     Route: 048
     Dates: start: 1995
  10. ALCHERA [Concomitant]
     Indication: INSOMNIA
     Dosage: 7.5 MG, HALF A TABLET DAILY AT NIGHT (NOCTE)
     Route: 048
     Dates: start: 2014
  11. VECTORYL PLUS [Concomitant]
     Indication: HYPERTENSION
     Dosage: 4/1.25MG
     Route: 048
     Dates: start: 1995
  12. SPERSALLERG [Concomitant]
     Indication: CONJUNCTIVITIS
     Dosage: INSTIL DROPS, AS NEEDED
     Dates: start: 1975

REACTIONS (4)
  - Fall [Recovering/Resolving]
  - Neuralgia [Not Recovered/Not Resolved]
  - Alopecia [Unknown]
  - Femur fracture [Recovering/Resolving]

NARRATIVE: CASE EVENT DATE: 20141107
